FAERS Safety Report 8505199-3 (Version None)
Quarter: 2012Q3

REPORT INFORMATION
  Report Type: 
  Country: None (occurrence: None)
  Receive Date: 20120712
  Receipt Date: 20120703
  Transmission Date: 20120928
  Serious: Yes (Hospitalization, Other)
  Sender: FDA-Public Use
  Company Number: JP-VERTEX PHARMACEUTICALS INC.-AE-2012-008089

PATIENT
  Age: 56 Year
  Sex: Male

DRUGS (13)
  1. PEGINTERFERON ALFA-2B [Concomitant]
     Route: 058
     Dates: end: 20120623
  2. PEGINTERFERON ALFA-2B [Concomitant]
     Indication: HEPATITIS C
     Route: 058
     Dates: start: 20120406, end: 20120511
  3. MUCOSTA [Concomitant]
     Route: 048
  4. RIBAVIRIN [Concomitant]
     Route: 048
     Dates: start: 20120512
  5. RIBAVIRIN [Concomitant]
     Route: 048
     Dates: start: 20120615, end: 20120629
  6. TELAVIC (TELAPREVIR) [Suspect]
     Indication: HEPATITIS C
     Route: 048
     Dates: start: 20120406, end: 20120524
  7. ACETAMINOPHEN [Concomitant]
     Route: 048
     Dates: start: 20120406, end: 20120420
  8. OMEPRAZOLE [Concomitant]
     Route: 048
  9. RIBAVIRIN [Concomitant]
     Indication: HEPATITIS C
     Route: 048
     Dates: start: 20120406, end: 20120427
  10. TELAVIC (TELAPREVIR) [Suspect]
     Route: 048
     Dates: start: 20120525, end: 20120629
  11. RIBAVIRIN [Concomitant]
     Route: 048
     Dates: start: 20120601, end: 20120614
  12. PEGINTERFERON ALFA-2B [Concomitant]
     Route: 058
     Dates: start: 20120512
  13. RIBAVIRIN [Concomitant]
     Route: 048
     Dates: start: 20120428, end: 20120511

REACTIONS (3)
  - ENTERITIS [None]
  - COLITIS [None]
  - ANAEMIA [None]
